FAERS Safety Report 17706305 (Version 2)
Quarter: 2020Q2

REPORT INFORMATION
  Report Type: Spontaneous
  Country: US (occurrence: US)
  Receive Date: 20200424
  Receipt Date: 20200616
  Transmission Date: 20200714
  Serious: No
  Sender: FDA-Public Use
  Company Number: US-PFIZER INC-2020163256

PATIENT
  Age: 64 Year
  Sex: Female
  Weight: 87.08 kg

DRUGS (5)
  1. IBRANCE [Suspect]
     Active Substance: PALBOCICLIB
     Dosage: 125 MG, CYCLIC (DAILY 21 DAYS WITH 7 DAY BREAK)
     Route: 048
     Dates: start: 20200401
  2. CLARITIN [Concomitant]
     Active Substance: LORATADINE
     Dosage: 10 MG
  3. IBRANCE [Suspect]
     Active Substance: PALBOCICLIB
     Dosage: 125 MG, CYCLIC (DAILY 21 DAYS WITH 7 DAY BREAK)
     Route: 048
     Dates: start: 20200401
  4. FASLODEX [Suspect]
     Active Substance: FULVESTRANT
     Dosage: 250 MG
  5. NEULASTA [Concomitant]
     Active Substance: PEGFILGRASTIM
     Dosage: UNK

REACTIONS (6)
  - Pain in extremity [Recovered/Resolved]
  - Seasonal allergy [Unknown]
  - Back pain [Unknown]
  - Blood test abnormal [Unknown]
  - Cough [Unknown]
  - Musculoskeletal pain [Unknown]

NARRATIVE: CASE EVENT DATE: 202004
